FAERS Safety Report 5687473-1 (Version None)
Quarter: 2008Q1

REPORT INFORMATION
  Report Type: 
  Country: None (occurrence: None)
  Receive Date: 20080328
  Receipt Date: 20070716
  Transmission Date: 20080703
  Serious: No
  Sender: FDA-Public Use
  Company Number: US-BAYER-US-2007-015447

PATIENT
  Age: 44 Year
  Sex: Female
  Weight: 66 kg

DRUGS (3)
  1. MIRENA [Suspect]
     Indication: CONTRACEPTION
     Route: 015
     Dates: start: 20070410, end: 20070502
  2. KLONOPIN [Concomitant]
     Indication: SLEEP DISORDER
  3. BROMOCRIPTINE MESYLATE [Concomitant]
     Indication: PITUITARY TUMOUR BENIGN
     Dosage: UNIT DOSE: 1 MG

REACTIONS (2)
  - IUCD COMPLICATION [None]
  - RASH ERYTHEMATOUS [None]
